FAERS Safety Report 9306093 (Version 3)
Quarter: 2013Q4

REPORT INFORMATION
  Report Type: Spontaneous
  Country: US (occurrence: US)
  Receive Date: 20130523
  Receipt Date: 20131011
  Transmission Date: 20140711
  Serious: Yes (Other)
  Sender: FDA-Public Use
  Company Number: US-ELI_LILLY_AND_COMPANY-US201305004640

PATIENT
  Age: 34 Year
  Sex: Female
  Weight: 105 kg

DRUGS (2)
  1. CYMBALTA [Suspect]
     Indication: DEPRESSION
     Dosage: 60 MG, QD
     Route: 048
     Dates: start: 20130307, end: 20130405
  2. CYMBALTA [Suspect]
     Indication: BACK PAIN

REACTIONS (2)
  - Deafness bilateral [Not Recovered/Not Resolved]
  - Tinnitus [Not Recovered/Not Resolved]
